FAERS Safety Report 5631164-X (Version None)
Quarter: 2008Q1

REPORT INFORMATION
  Report Type: 
  Country: None (occurrence: None)
  Receive Date: 20080219
  Receipt Date: 20080212
  Transmission Date: 20080703
  Serious: Yes (Other)
  Sender: FDA-Public Use
  Company Number: MX-BOEHRINGER INGELHEIM GMBH, GERMANY-2008-BP-02112RO

PATIENT
  Age: 33 Year
  Sex: Female

DRUGS (4)
  1. LIDOCAINE [Suspect]
     Indication: ENDOSCOPY
     Route: 061
  2. LIDOCAINE [Suspect]
     Indication: BIOPSY
  3. LORATADINE [Concomitant]
     Indication: ADVERSE DRUG REACTION
     Route: 048
  4. BETAMETHASONE [Concomitant]
     Indication: ADVERSE DRUG REACTION
     Route: 048

REACTIONS (2)
  - ERYTHEMA MULTIFORME [None]
  - ERYTHEMA NODOSUM [None]
